FAERS Safety Report 5079385-1 (Version None)
Quarter: 2006Q3

REPORT INFORMATION
  Report Type: 
  Country: None (occurrence: None)
  Receive Date: 20060809
  Receipt Date: 20060731
  Transmission Date: 20061208
  Serious: Yes (Disabling, Other)
  Sender: FDA-Public Use
  Company Number: 2006026755

PATIENT
  Sex: Male
  Weight: 68.0396 kg

DRUGS (5)
  1. VIAGRA [Suspect]
     Indication: ERECTILE DYSFUNCTION
     Dosage: (50 MG, AS NECESSARY)
     Dates: end: 20060101
  2. WARFARIN (WARFARIN) [Suspect]
     Indication: DRUG USE FOR UNKNOWN INDICATION
  3. DIGOXIN [Concomitant]
  4. ANTIHISTAMINES (ANTIHISTAMINES) [Concomitant]
  5. VITAMINS (VITAMINS) [Concomitant]

REACTIONS (7)
  - BLINDNESS UNILATERAL [None]
  - EYE HAEMORRHAGE [None]
  - OCULAR HYPERAEMIA [None]
  - POLYP [None]
  - THERAPEUTIC RESPONSE DELAYED [None]
  - THERAPY NON-RESPONDER [None]
  - VISUAL DISTURBANCE [None]
